FAERS Safety Report 6572250-X (Version None)
Quarter: 2010Q1

REPORT INFORMATION
  Report Type: 
  Country: None (occurrence: None)
  Receive Date: 20100205
  Receipt Date: 20100201
  Transmission Date: 20100710
  Serious: Yes (Death, Hospitalization, Other)
  Sender: FDA-Public Use
  Company Number: PHHY2009SI47694

PATIENT
  Sex: Female
  Weight: 67 kg

DRUGS (17)
  1. EXJADE [Suspect]
     Indication: IRON OVERLOAD
     Dosage: 500 MG, QOD
     Route: 048
  2. EXJADE [Suspect]
     Dosage: 500 MG, DAILY
     Route: 048
     Dates: start: 20091030
  3. DIGOXIN [Concomitant]
  4. THYROID HORMONES [Concomitant]
  5. BETA BLOCKING AGENTS [Concomitant]
  6. PROTON PUMP INHIBITORS [Concomitant]
  7. CORTICOSTEROIDS [Concomitant]
  8. HEPARIN [Concomitant]
  9. ACETYLSALICYLIC ACID [Concomitant]
  10. VITAMIN D3 [Concomitant]
  11. LEVOTHYROXINE SODIUM [Concomitant]
  12. CARVEDILOL [Concomitant]
  13. ESOMEPRAZOLE [Concomitant]
  14. KORNAM [Concomitant]
  15. MEDROL [Concomitant]
  16. DIOVAN [Concomitant]
  17. AMLOPIN [Concomitant]

REACTIONS (25)
  - AORTIC VALVE DISEASE MIXED [None]
  - ATRIAL FIBRILLATION [None]
  - BLOOD PRESSURE DIASTOLIC INCREASED [None]
  - BLOOD UREA INCREASED [None]
  - C-REACTIVE PROTEIN INCREASED [None]
  - CARDIAC FAILURE CONGESTIVE [None]
  - CARDIAC MURMUR [None]
  - CHEST PAIN [None]
  - DYSPNOEA [None]
  - ELECTROCARDIOGRAM ST SEGMENT ABNORMAL [None]
  - EOSINOPHILIC PNEUMONIA [None]
  - FIBRIN D DIMER INCREASED [None]
  - HYPERCAPNIA [None]
  - HYPONATRAEMIA [None]
  - HYPOXIA [None]
  - LEFT VENTRICULAR HYPERTROPHY [None]
  - LEUKOCYTOSIS [None]
  - MALIGNANT NEOPLASM PROGRESSION [None]
  - MITRAL VALVE INCOMPETENCE [None]
  - NORMOCHROMIC NORMOCYTIC ANAEMIA [None]
  - PULMONARY FIBROSIS [None]
  - RALES [None]
  - RESPIRATORY ALKALOSIS [None]
  - TACHYCARDIA [None]
  - VENTRICULAR ARRHYTHMIA [None]
